FAERS Safety Report 23799116 (Version 1)
Quarter: 2024Q2

REPORT INFORMATION
  Report Type: Spontaneous
  Country: DE (occurrence: DE)
  Receive Date: 20240430
  Receipt Date: 20240430
  Transmission Date: 20240716
  Serious: Yes (Other)
  Sender: FDA-Public Use
  Company Number: None

PATIENT
  Age: 60 Year
  Sex: Female
  Weight: 74 kg

DRUGS (4)
  1. NEUPRO [Suspect]
     Active Substance: ROTIGOTINE
     Indication: Restless legs syndrome
     Dosage: 1 MILLIGRAM, ONCE DAILY (QD)
     Route: 062
     Dates: start: 20220110, end: 20230804
  2. NEUPRO [Suspect]
     Active Substance: ROTIGOTINE
     Dosage: EVERY 2 DAYS
     Route: 062
  3. VALSARTAN [Concomitant]
     Active Substance: VALSARTAN
     Indication: Essential hypertension
     Dosage: 80 MILLIGRAM, 2X/DAY (BID)
  4. CLOPIDOGREL [Concomitant]
     Active Substance: CLOPIDOGREL BISULFATE
     Indication: Cerebral infarction
     Dosage: 75 MILLIGRAM, ONCE DAILY (QD)

REACTIONS (10)
  - Sudden onset of sleep [Not Recovered/Not Resolved]
  - Narcolepsy [Not Recovered/Not Resolved]
  - Application site pruritus [Recovered/Resolved]
  - Fatigue [Not Recovered/Not Resolved]
  - Application site erythema [Recovered/Resolved]
  - Mania [Recovered/Resolved]
  - Pruritus [Recovered/Resolved]
  - Agitation [Not Recovered/Not Resolved]
  - Somnolence [Not Recovered/Not Resolved]
  - Inappropriate schedule of product administration [Unknown]

NARRATIVE: CASE EVENT DATE: 20230501
